FAERS Safety Report 10995047 (Version 3)
Quarter: 2015Q2

REPORT INFORMATION
  Report Type: Spontaneous
  Country: US (occurrence: US)
  Receive Date: 20150407
  Receipt Date: 20150506
  Transmission Date: 20150821
  Serious: Yes (Death, Hospitalization, Other)
  Sender: FDA-Public Use
  Company Number: US-GLAXOSMITHKLINE-US2015GSK045552

PATIENT
  Sex: Female

DRUGS (1)
  1. VOTRIENT [Suspect]
     Active Substance: PAZOPANIB HYDROCHLORIDE
     Indication: THYROID CANCER
     Dosage: 4 TABLETS ALTERNATING WITH 3 TABLETS, QD
     Route: 065
     Dates: start: 20131003

REACTIONS (5)
  - Fluid retention [Unknown]
  - Drug dose omission [Unknown]
  - Death [Fatal]
  - Lung infection [Unknown]
  - Gastric haemorrhage [Unknown]
